FAERS Safety Report 12434299 (Version 3)
Quarter: 2016Q3

REPORT INFORMATION
  Report Type: Spontaneous
  Country: NL (occurrence: NL)
  Receive Date: 20160603
  Receipt Date: 20160713
  Transmission Date: 20161109
  Serious: Yes (Other)
  Sender: FDA-Public Use
  Company Number: NL-009507513-1606NLD000854

PATIENT
  Age: 30 Year
  Sex: Female

DRUGS (1)
  1. IMPLANON [Suspect]
     Active Substance: ETONOGESTREL
     Dosage: UNK
     Route: 030
     Dates: start: 20151016, end: 20160425

REACTIONS (6)
  - Migration of implanted drug [Recovered/Resolved]
  - Difficulty removing drug implant [Recovered/Resolved]
  - Device deployment issue [Recovered/Resolved]
  - Menorrhagia [Unknown]
  - Incorrect route of drug administration [Unknown]
  - Complication associated with device [Recovered/Resolved]

NARRATIVE: CASE EVENT DATE: 20151016
